FAERS Safety Report 4965675-7 (Version None)
Quarter: 2006Q2

REPORT INFORMATION
  Report Type: 
  Country: None (occurrence: None)
  Receive Date: 20060407
  Receipt Date: 20060201
  Transmission Date: 20061013
  Serious: Yes (Other)
  Sender: FDA-Public Use
  Company Number: ES-ABBOTT-06P-144-0323868-00

PATIENT
  Age: 33 Year
  Sex: Male

DRUGS (6)
  1. KALETRA [Suspect]
     Indication: HIV INFECTION
     Route: 048
     Dates: start: 20021111, end: 20050523
  2. LAMIVUDINE [Concomitant]
     Indication: HIV INFECTION
     Dates: start: 19990101
  3. LAMIVUDINE [Concomitant]
     Dates: start: 20021111
  4. STAVUDINE [Concomitant]
     Indication: HIV INFECTION
     Dates: start: 19990101, end: 20050523
  5. RITONAVIR [Concomitant]
     Indication: HIV INFECTION
     Dates: start: 20050523
  6. TENOFOVIR [Concomitant]
     Indication: HIV INFECTION
     Dates: start: 20050523

REACTIONS (1)
  - LIPOMA [None]
